FAERS Safety Report 4458423-0 (Version None)
Quarter: 2004Q3

REPORT INFORMATION
  Report Type: 
  Country: None (occurrence: None)
  Receive Date: 20040922
  Receipt Date: 20040906
  Transmission Date: 20050211
  Serious: Yes (Death, Hospitalization)
  Sender: FDA-Public Use
  Company Number: FR_040904697

PATIENT

DRUGS (5)
  1. ALIMTA [Suspect]
     Indication: PLEURAL MESOTHELIOMA MALIGNANT
     Dosage: 500 MG/M2/1 OTHER
     Dates: start: 20040326, end: 20040507
  2. CISPLATIN [Concomitant]
  3. FOLIC ACID [Concomitant]
  4. VITAMIN B-12 [Concomitant]
  5. DEXAMETHASONE [Concomitant]

REACTIONS (8)
  - ANAEMIA [None]
  - AXILLARY PAIN [None]
  - DISEASE PROGRESSION [None]
  - GENERAL PHYSICAL CONDITION ABNORMAL [None]
  - NEUTROPENIA [None]
  - OBSTRUCTION [None]
  - PERITONEAL DISORDER [None]
  - PHLEBITIS [None]
